FAERS Safety Report 23915492 (Version 2)
Quarter: 2024Q2

REPORT INFORMATION
  Report Type: Report from Study
  Country: GB (occurrence: GB)
  Receive Date: 20240529
  Receipt Date: 20240604
  Transmission Date: 20240715
  Serious: Yes (Other)
  Sender: FDA-Public Use
  Company Number: GB-002147023-NVSC2024GB104203

PATIENT
  Sex: Female

DRUGS (1)
  1. KESIMPTA [Suspect]
     Active Substance: OFATUMUMAB
     Indication: Multiple sclerosis
     Dosage: 20 MG, QMO
     Route: 058
     Dates: start: 20230704

REACTIONS (5)
  - Lower respiratory tract infection [Recovered/Resolved]
  - Dysarthria [Unknown]
  - Influenza like illness [Unknown]
  - Injection site bruising [Recovered/Resolved]
  - Product distribution issue [Recovered/Resolved]
